FAERS Safety Report 6020768-0 (Version None)
Quarter: 2008Q4

REPORT INFORMATION
  Report Type: 
  Country: None (occurrence: None)
  Receive Date: 20081229
  Receipt Date: 20081218
  Transmission Date: 20090506
  Serious: Yes (Death)
  Sender: FDA-Public Use
  Company Number: US-JNJFOC-20081206435

PATIENT
  Age: 61 Year
  Sex: Female

DRUGS (8)
  1. ACETAMINOPHEN AND CODEINE PHOSPHATE [Suspect]
     Indication: SUICIDE ATTEMPT
     Route: 048
  2. OXYCODONE [Suspect]
     Indication: SUICIDE ATTEMPT
     Route: 065
  3. ESCITALOPRAM [Suspect]
     Indication: SUICIDE ATTEMPT
     Route: 065
  4. LEVOTHYROXINE [Suspect]
     Indication: SUICIDE ATTEMPT
     Route: 065
  5. THIAZIDE [Suspect]
     Indication: SUICIDE ATTEMPT
     Route: 065
  6. ACETAMINOPHEN/DIPHENHYDRAMINE [Suspect]
     Indication: SUICIDE ATTEMPT
     Route: 065
  7. ESTRADIOL [Suspect]
     Indication: SUICIDE ATTEMPT
     Route: 065
  8. PROGESTIN INJ [Suspect]
     Indication: SUICIDE ATTEMPT
     Route: 065

REACTIONS (2)
  - COMPLETED SUICIDE [None]
  - DRUG TOXICITY [None]
